APPROVED DRUG PRODUCT: PARICALCITOL
Active Ingredient: PARICALCITOL
Strength: 2MCG
Dosage Form/Route: CAPSULE;ORAL
Application: A204948 | Product #002 | TE Code: AB
Applicant: MARKSANS PHARMA LTD
Approved: Oct 7, 2016 | RLD: No | RS: No | Type: RX